FAERS Safety Report 19573267 (Version 1)
Quarter: 2021Q3

REPORT INFORMATION
  Report Type: Spontaneous
  Country: NL (occurrence: NL)
  Receive Date: 20210717
  Receipt Date: 20210717
  Transmission Date: 20211014
  Serious: Yes (Hospitalization)
  Sender: FDA-Public Use
  Company Number: NL-AUROBINDO-AUR-APL-2021-029681

PATIENT
  Age: 49 Year
  Sex: Female
  Weight: 64 kg

DRUGS (1)
  1. CELECOXIB 100 MG CAPSULES, HARD [Suspect]
     Active Substance: CELECOXIB
     Indication: ARTHRITIS
     Dosage: 100 MILLIGRAM, TWO TIMES A DAY (2 X A DAY 1 (I ONLY USED 1!))
     Route: 065
     Dates: start: 20210702

REACTIONS (6)
  - Panic reaction [Recovered/Resolved]
  - Palpitations [Recovered/Resolved]
  - Presyncope [Recovered/Resolved]
  - Anxiety [Recovered/Resolved]
  - Dizziness [Recovered/Resolved]
  - Sleep disorder [Recovered/Resolved]

NARRATIVE: CASE EVENT DATE: 20210702
